FAERS Safety Report 25177946 (Version 1)
Quarter: 2025Q2

REPORT INFORMATION
  Report Type: Spontaneous
  Country: CN (occurrence: CN)
  Receive Date: 20250409
  Receipt Date: 20250409
  Transmission Date: 20250717
  Serious: Yes (Hospitalization)
  Sender: NOVARTIS
  Company Number: CN-002147023-NVSC2025CN055766

PATIENT
  Age: 56 Year
  Sex: Male
  Weight: 78.5 kg

DRUGS (6)
  1. TEGRETOL [Suspect]
     Active Substance: CARBAMAZEPINE
     Indication: Herpes zoster
     Dosage: 200 MG, BID
     Route: 048
     Dates: start: 20250324, end: 20250327
  2. TEGRETOL [Suspect]
     Active Substance: CARBAMAZEPINE
     Indication: Neuritis
  3. TEGRETOL [Suspect]
     Active Substance: CARBAMAZEPINE
     Indication: Skin infection
  4. DOXYCYCLINE HYCLATE [Suspect]
     Active Substance: DOXYCYCLINE HYCLATE
     Indication: Herpes zoster
     Dosage: 0.1 G, BID
     Route: 048
     Dates: start: 20250325, end: 20250328
  5. DOXYCYCLINE HYCLATE [Suspect]
     Active Substance: DOXYCYCLINE HYCLATE
     Indication: Neuritis
  6. DOXYCYCLINE HYCLATE [Suspect]
     Active Substance: DOXYCYCLINE HYCLATE
     Indication: Skin infection

REACTIONS (7)
  - Rash [Recovering/Resolving]
  - Drug eruption [Unknown]
  - Pruritus [Recovering/Resolving]
  - Erythema [Unknown]
  - Scratch [Unknown]
  - Pustule [Unknown]
  - Off label use [Unknown]

NARRATIVE: CASE EVENT DATE: 20250324
